FAERS Safety Report 10584900 (Version 3)
Quarter: 2015Q2

REPORT INFORMATION
  Report Type: Spontaneous
  Country: JP (occurrence: JP)
  Receive Date: 20141114
  Receipt Date: 20150406
  Transmission Date: 20150821
  Serious: Yes (Death, Hospitalization)
  Sender: FDA-Public Use
  Company Number: JP-MERCK-1411JPN005825

PATIENT
  Age: 82 Year
  Sex: Female

DRUGS (10)
  1. REFLEX [Suspect]
     Active Substance: MIRTAZAPINE
     Indication: DECREASED APPETITE
  2. AZOSEMIDE [Concomitant]
     Active Substance: AZOSEMIDE
     Indication: CARDIAC FAILURE
  3. RABEPRAZOLE SODIUM. [Concomitant]
     Active Substance: RABEPRAZOLE SODIUM
     Indication: GASTROOESOPHAGEAL REFLUX DISEASE
     Dosage: DAILY DOSE 10MG
     Route: 048
     Dates: start: 20130930, end: 20141107
  4. ENALAPRIL MALEATE. [Concomitant]
     Active Substance: ENALAPRIL MALEATE
     Indication: HYPERTENSION
     Dosage: DAILY DOSE 25MG
     Route: 048
     Dates: start: 20141016, end: 20141029
  5. POTASSIUM ASPARTATE [Concomitant]
     Active Substance: POTASSIUM ASPARTATE
     Indication: HYPOKALAEMIA
     Dosage: DAILY DOSE 300MG
     Route: 048
     Dates: start: 20130729, end: 20141101
  6. WARFARIN POTASSIUM [Concomitant]
     Active Substance: WARFARIN POTASSIUM
     Indication: PROPHYLAXIS
     Dosage: DAILY DOSE 2MG
     Route: 048
     Dates: start: 20130808, end: 20141107
  7. AZOSEMIDE [Concomitant]
     Active Substance: AZOSEMIDE
     Indication: PRODUCT USED FOR UNKNOWN INDICATION
     Dosage: 30 MG, QD
     Route: 048
     Dates: start: 20141024, end: 20141101
  8. REFLEX [Suspect]
     Active Substance: MIRTAZAPINE
     Indication: DEPRESSION
     Dosage: DAILY DOSE 15MG
     Route: 048
     Dates: start: 20141030, end: 20141031
  9. METILDIGOXIN [Concomitant]
     Active Substance: METILDIGOXIN
     Indication: CARDIAC FAILURE CONGESTIVE
     Dosage: DAILY DOSE 0.025MG
     Route: 048
     Dates: start: 20130723, end: 20141107
  10. VERAPAMIL HYDROCHLORIDE. [Concomitant]
     Active Substance: VERAPAMIL HYDROCHLORIDE
     Indication: ARRHYTHMIA
     Dosage: DAILY DOSE 80MG
     Route: 048
     Dates: start: 20130723, end: 20141101

REACTIONS (1)
  - Cardiac failure [Fatal]

NARRATIVE: CASE EVENT DATE: 20141101
